FAERS Safety Report 9564784 (Version 1)
Quarter: 2013Q3

REPORT INFORMATION
  Report Type: Spontaneous
  Country: SE (occurrence: SE)
  Receive Date: 20130930
  Receipt Date: 20130930
  Transmission Date: 20140515
  Serious: Yes (Hospitalization)
  Sender: FDA-Public Use
  Company Number: SE-JNJFOC-20130913065

PATIENT
  Age: 70 Year
  Sex: Male

DRUGS (5)
  1. REMICADE [Suspect]
     Indication: RHEUMATOID ARTHRITIS
     Dosage: CYCLICAL
     Route: 042
     Dates: start: 20091022, end: 20130412
  2. METOJECT [Concomitant]
     Route: 065
     Dates: start: 2009
  3. KALCIPOS D [Concomitant]
     Route: 065
  4. FOLACIN [Concomitant]
     Route: 065
  5. PREDNISOLONE [Concomitant]
     Route: 065

REACTIONS (1)
  - Skin cancer [Not Recovered/Not Resolved]
